FAERS Safety Report 9290700 (Version 4)
Quarter: 2013Q3

REPORT INFORMATION
  Report Type: Spontaneous
  Country: CH (occurrence: None)
  Receive Date: 20130513
  Receipt Date: 20130822
  Transmission Date: 20140515
  Serious: Yes (Death, Hospitalization)
  Sender: FDA-Public Use
  Company Number: 20130225

PATIENT
  Age: 44 Year
  Sex: Female

DRUGS (3)
  1. VENOFER [Suspect]
     Indication: ANAEMIA
     Dosage: 1 AMPOULE (2 CONSECUTIVE DAYS), IV
     Route: 042
     Dates: start: 201304, end: 201304
  2. UNKNOWN [Concomitant]
  3. BENZATHINE BENZYLPENICILLIN (BENZETACIL) [Concomitant]

REACTIONS (9)
  - Pulmonary haemorrhage [None]
  - Lip swelling [None]
  - Infection [None]
  - Hyperglycaemia [None]
  - Generalised erythema [None]
  - Arterial rupture [None]
  - Anaemia [None]
  - Drug hypersensitivity [None]
  - Expired drug administered [None]
